FAERS Safety Report 5915572-5 (Version None)
Quarter: 2008Q4

REPORT INFORMATION
  Report Type: 
  Country: None (occurrence: None)
  Receive Date: 20081010
  Receipt Date: 20080908
  Transmission Date: 20090506
  Serious: No
  Sender: FDA-Public Use
  Company Number: A0743725A

PATIENT
  Age: 58 Year
  Sex: Female
  Weight: 73.6 kg

DRUGS (3)
  1. TYKERB [Suspect]
     Indication: BREAST CANCER
     Dosage: 1000MG PER DAY
     Route: 048
     Dates: start: 20080728, end: 20080814
  2. RADIATION THERAPY [Concomitant]
     Dates: start: 20080807
  3. HERCEPTIN [Concomitant]
     Dosage: 6MGK EVERY 3 WEEKS
     Route: 042

REACTIONS (3)
  - DIARRHOEA [None]
  - PRURITUS [None]
  - RASH [None]
